FAERS Safety Report 15393135 (Version 1)
Quarter: 2018Q3

REPORT INFORMATION
  Report Type: Spontaneous
  Country: GB (occurrence: FR)
  Receive Date: 20180917
  Receipt Date: 20180917
  Transmission Date: 20181010
  Serious: Yes (Life-Threatening, Hospitalization, Other)
  Sender: FDA-Public Use
  Company Number: GB-OTSUKA-2018_030778

PATIENT
  Age: 5 Month
  Sex: Female
  Weight: 5.09 kg

DRUGS (3)
  1. BUSILVEX [Suspect]
     Active Substance: BUSULFAN
     Indication: STEM CELL TRANSPLANT
     Dosage: 3 MG/KG, QD
     Route: 041
     Dates: start: 20180510, end: 20180514
  2. DEFIBROTIDE [Concomitant]
     Active Substance: DEFIBROTIDE (BOVINE)
     Indication: PRODUCT USED FOR UNKNOWN INDICATION
     Dosage: UNK
     Route: 065
     Dates: start: 20180510, end: 20180612
  3. ALKERAN [Suspect]
     Active Substance: MELPHALAN
     Indication: STEM CELL TRANSPLANT
     Dosage: 4 MG/KG IN TOTAL
     Route: 041
     Dates: start: 20180510

REACTIONS (2)
  - Pulmonary arterial hypertension [Recovering/Resolving]
  - Venoocclusive liver disease [Recovered/Resolved]

NARRATIVE: CASE EVENT DATE: 201806
